FAERS Safety Report 8499787-0 (Version None)
Quarter: 2012Q3

REPORT INFORMATION
  Report Type: 
  Country: None (occurrence: None)
  Receive Date: 20120710
  Receipt Date: 20120629
  Transmission Date: 20120928
  Serious: Yes (Other)
  Sender: FDA-Public Use
  Company Number: JP-NOVOPROD-354253

PATIENT
  Age: 67 Year
  Sex: Female
  Weight: 78 kg

DRUGS (9)
  1. CANDESARTAN CILEXETIL [Concomitant]
     Dosage: 8 MG, QD
     Route: 048
     Dates: start: 20060426
  2. LIPITOR [Concomitant]
     Dosage: 10 MG, QD
     Route: 048
     Dates: start: 20091021
  3. VICTOZA [Suspect]
     Dosage: 0.9 MG, QD
     Dates: start: 20111214
  4. VICTOZA [Suspect]
     Indication: TYPE 2 DIABETES MELLITUS
     Dosage: 0.3 MG, QD
     Route: 058
     Dates: start: 20111114
  5. NARCARICIN [Concomitant]
     Dosage: 1 TAB, QD
     Route: 048
     Dates: start: 20060426
  6. VICTOZA [Suspect]
     Dosage: 0.6 MG, QD
     Route: 058
     Dates: start: 20111121
  7. BENIDIPINE HYDROCHLORIDE [Concomitant]
     Dosage: 4 MG, QD
     Route: 048
     Dates: start: 20060426
  8. CARVEDILOL [Concomitant]
     Dosage: 10 MG, QD
     Route: 048
     Dates: start: 20060426
  9. URALYT                             /06402701/ [Concomitant]
     Dosage: 1 TAB, QD
     Route: 048
     Dates: start: 20060426

REACTIONS (1)
  - LOSS OF CONSCIOUSNESS [None]
